FAERS Safety Report 11694110 (Version 1)
Quarter: 2015Q4

REPORT INFORMATION
  Report Type: Spontaneous
  Country: US (occurrence: US)
  Receive Date: 20151103
  Receipt Date: 20151103
  Transmission Date: 20160304
  Serious: No
  Sender: FDA-Public Use
  Company Number: US-SA-2015SA105762

PATIENT
  Sex: Female

DRUGS (1)
  1. UNISOM SLEEPTABS [Suspect]
     Active Substance: DOXYLAMINE SUCCINATE
     Dosage: DOSE AND DAILY DOSE: PATIENT TOOK HALF TABLET IN EVENING
     Route: 065

REACTIONS (2)
  - Wrong technique in product usage process [Unknown]
  - Inflammation [Unknown]
